FAERS Safety Report 5932195-2 (Version None)
Quarter: 2008Q4

REPORT INFORMATION
  Report Type: 
  Country: None (occurrence: None)
  Receive Date: 20081021
  Receipt Date: 20081006
  Transmission Date: 20090506
  Serious: Yes (Congenital Anomaly, Other)
  Sender: FDA-Public Use
  Company Number: 2008100020

PATIENT

DRUGS (1)
  1. MEPROBAMATE [Suspect]
     Dosage: (4000 MG), TRANSPLACENTAL
     Route: 064

REACTIONS (4)
  - INTENTIONAL DRUG MISUSE [None]
  - MATERNAL DRUGS AFFECTING FOETUS [None]
  - PECTUS EXCAVATUM [None]
  - SUICIDE ATTEMPT [None]
